FAERS Safety Report 19867764 (Version 1)
Quarter: 2021Q3

REPORT INFORMATION
  Report Type: Spontaneous
  Country: US (occurrence: US)
  Receive Date: 20210922
  Receipt Date: 20210922
  Transmission Date: 20211014
  Serious: No
  Sender: FDA-Public Use
  Company Number: US-ASTRAZENECA-2021A704911

PATIENT
  Age: 27373 Day
  Sex: Male
  Weight: 49.9 kg

DRUGS (3)
  1. SYMBICORT [Suspect]
     Active Substance: BUDESONIDE\FORMOTEROL FUMARATE DIHYDRATE
     Indication: CHRONIC OBSTRUCTIVE PULMONARY DISEASE
     Dosage: 160MCG/4.5MCG AS 2 PUFFS 2 TIMES PER DAY
     Route: 055
     Dates: start: 2020
  2. PROAIR HFA [Concomitant]
     Active Substance: ALBUTEROL SULFATE
  3. SYMBICORT [Suspect]
     Active Substance: BUDESONIDE\FORMOTEROL FUMARATE DIHYDRATE
     Indication: CHRONIC OBSTRUCTIVE PULMONARY DISEASE
     Dosage: 160MCG/4.5MCG AS 2 PUFFS 2 TIMES PER DAY
     Route: 055
     Dates: start: 2019, end: 2020

REACTIONS (2)
  - Dizziness [Recovering/Resolving]
  - Motion sickness [Unknown]

NARRATIVE: CASE EVENT DATE: 20210829
